FAERS Safety Report 18077252 (Version 2)
Quarter: 2022Q2

REPORT INFORMATION
  Report Type: Spontaneous
  Country: GB (occurrence: GB)
  Receive Date: 20200728
  Receipt Date: 20220623
  Transmission Date: 20220721
  Serious: Yes (Death, Other)
  Sender: FDA-Public Use
  Company Number: None

PATIENT
  Age: 57 Year
  Sex: Female
  Weight: 80 kg

DRUGS (1)
  1. TYSABRI [Suspect]
     Active Substance: NATALIZUMAB
     Indication: Multiple sclerosis
     Dates: start: 20150105, end: 20200501

REACTIONS (6)
  - Death [Fatal]
  - Metastases to liver [Unknown]
  - Malignant neoplasm of unknown primary site [Unknown]
  - Metastases to lung [Unknown]
  - Small cell lung cancer [Unknown]
  - Liver function test abnormal [Unknown]

NARRATIVE: CASE EVENT DATE: 20200501
